FAERS Safety Report 17990533 (Version 2)
Quarter: 2020Q3

REPORT INFORMATION
  Report Type: Report from Study
  Country: None (occurrence: US)
  Receive Date: 20200707
  Receipt Date: 20200802
  Transmission Date: 20201103
  Serious: No
  Sender: FDA-Public Use
  Company Number: US-ABBVIE-20K-163-3466666-00

PATIENT
  Sex: Female

DRUGS (2)
  1. HUMIRA [Suspect]
     Active Substance: ADALIMUMAB
     Indication: CROHN^S DISEASE
     Route: 058
     Dates: start: 2016
  2. HUMIRA [Suspect]
     Active Substance: ADALIMUMAB
     Route: 058

REACTIONS (16)
  - Food intolerance [Unknown]
  - Stomatitis [Recovering/Resolving]
  - Malaise [Unknown]
  - Stress [Unknown]
  - Bronchitis [Not Recovered/Not Resolved]
  - Dry eye [Unknown]
  - Poor quality sleep [Unknown]
  - Depression [Unknown]
  - Psoriasis [Recovering/Resolving]
  - Hypophagia [Recovering/Resolving]
  - White blood cell count increased [Unknown]
  - Antinuclear antibody positive [Unknown]
  - Sjogren^s syndrome [Unknown]
  - Asthenia [Unknown]
  - Crohn^s disease [Unknown]
  - Scab [Recovering/Resolving]

NARRATIVE: CASE EVENT DATE: 2018
